FAERS Safety Report 5895406-8 (Version None)
Quarter: 2008Q3

REPORT INFORMATION
  Report Type: 
  Country: None (occurrence: None)
  Receive Date: 20080922
  Receipt Date: 20080911
  Transmission Date: 20090109
  Serious: Yes (Hospitalization)
  Sender: FDA-Public Use
  Company Number: GXKR2008DK08853

PATIENT
  Age: 66 Year
  Sex: Female

DRUGS (2)
  1. SIMVASTATIN HEXAL (NGX) (SIMVASTATIN) FILM-COATED TABLET, 40MG [Suspect]
     Indication: HYPERCHOLESTEROLAEMIA
     Dosage: 40 MG, ORAL
     Route: 048
     Dates: start: 20080501, end: 20080724
  2. IMOVANE (ZOPICLONE) [Concomitant]

REACTIONS (10)
  - BRONCHITIS BACTERIAL [None]
  - INSOMNIA [None]
  - MUSCLE SPASMS [None]
  - MYOCARDIAL INFARCTION [None]
  - MYOSITIS [None]
  - PALPITATIONS [None]
  - PARAESTHESIA [None]
  - PNEUMONIA PRIMARY ATYPICAL [None]
  - SWELLING FACE [None]
  - VIRAL INFECTION [None]
